FAERS Safety Report 11725845 (Version 1)
Quarter: 2015Q4

REPORT INFORMATION
  Report Type: Report from Study
  Country: BR (occurrence: BR)
  Receive Date: 20151111
  Receipt Date: 20151111
  Transmission Date: 20160304
  Serious: Yes (Hospitalization, Other)
  Sender: FDA-Public Use
  Company Number: BR-ABBVIE-15K-020-1496809-00

PATIENT
  Sex: Female
  Weight: 80 kg

DRUGS (9)
  1. ESCITALOPRAM [Concomitant]
     Active Substance: ESCITALOPRAM OXALATE
     Indication: SOCIAL PHOBIA
     Route: 048
     Dates: start: 20151020
  2. FLUOXETINE [Concomitant]
     Active Substance: FLUOXETINE HYDROCHLORIDE
     Indication: SOCIAL PHOBIA
     Route: 048
     Dates: start: 20151020
  3. CITALOPRAM [Concomitant]
     Active Substance: CITALOPRAM HYDROBROMIDE
     Indication: SOCIAL PHOBIA
     Route: 048
     Dates: start: 20151020
  4. SYSTANE (HYPROMELLOSE 2910 (4000 MPA.S)) [Concomitant]
     Active Substance: HYPROMELLOSE 2910 (4000 MPA.S)
     Indication: VISION BLURRED
     Dosage: 1 DROP / FORM OF ADMINISTRATION: DROPS, 4 OR 6 TIMES DAILY.
     Dates: start: 20151103
  5. PATANOL S [Concomitant]
     Indication: VISION BLURRED
     Dosage: FORM OF ADMINISTRATION: DROPS
     Dates: start: 20151103
  6. HUMIRA [Suspect]
     Active Substance: ADALIMUMAB
     Indication: ANKYLOSING SPONDYLITIS
     Route: 058
     Dates: start: 20150615
  7. HUMIRA [Suspect]
     Active Substance: ADALIMUMAB
     Route: 058
     Dates: start: 2015, end: 2015
  8. HUMIRA [Suspect]
     Active Substance: ADALIMUMAB
     Route: 058
     Dates: start: 2015
  9. CLOMIPRAMINE [Concomitant]
     Active Substance: CLOMIPRAMINE
     Indication: SOCIAL PHOBIA
     Route: 048
     Dates: start: 20151020

REACTIONS (5)
  - Chondropathy [Unknown]
  - Oedema peripheral [Unknown]
  - Abdominal pain upper [Unknown]
  - Influenza [Recovered/Resolved]
  - Asthenia [Not Recovered/Not Resolved]

NARRATIVE: CASE EVENT DATE: 2015
